FAERS Safety Report 6303065-5 (Version None)
Quarter: 2009Q3

REPORT INFORMATION
  Report Type: 
  Country: None (occurrence: None)
  Receive Date: 20090810
  Receipt Date: 20090730
  Transmission Date: 20100115
  Serious: Yes (Hospitalization)
  Sender: FDA-Public Use
  Company Number: FR-ROCHE-575426

PATIENT
  Sex: Male
  Weight: 41 kg

DRUGS (29)
  1. ENFUVIRTIDE [Suspect]
     Route: 058
     Dates: start: 20080709
  2. ENFUVIRTIDE [Suspect]
     Dosage: FREQUENCY REPORTED AS TIB.
     Route: 058
     Dates: start: 20090108
  3. KALETRA [Suspect]
     Route: 065
     Dates: start: 20080709
  4. EPIVIR [Suspect]
     Route: 065
     Dates: start: 20090208
  5. ISENTRESS [Suspect]
     Dosage: FREQUENCY REPORTED AS TIB.
     Route: 048
     Dates: start: 20081007
  6. ZIAGEN [Suspect]
     Dosage: FREQUENCY REPORTED AS TIB.
     Route: 065
     Dates: start: 20090208
  7. BACTRIM [Concomitant]
     Indication: PROPHYLAXIS
     Dosage: TOTAL DAILY DOSE REPORTED AS 400MG/D.
     Dates: start: 20080624
  8. STILNOX [Concomitant]
     Dates: start: 20080601
  9. ACUPAN [Concomitant]
     Indication: PAIN
     Dates: start: 20080601
  10. ACUPAN [Concomitant]
     Dates: start: 20090218
  11. ANSATIPINE [Concomitant]
     Dosage: TOTAL DAILY DOSE REPORTED AS 300MG/D.
     Dates: start: 20080703
  12. MYAMBUTOL [Concomitant]
     Dosage: TOTAL DAILY DOSE REPORTED AS 400MG/D.
     Dates: start: 20080703
  13. ZECLAR [Concomitant]
     Dosage: FREQUENCY REPORTED AS TIB.
     Dates: start: 20080703
  14. DOLIPRANE [Concomitant]
     Dates: start: 20080703
  15. FOLINORAL [Concomitant]
     Dates: start: 20080704
  16. ROVALCYTE [Concomitant]
     Dates: start: 20080705
  17. CORAMIL [Concomitant]
     Dates: start: 20080715
  18. PRIMPERAN [Concomitant]
     Indication: NAUSEA
     Dates: start: 20080717
  19. PRIMPERAN [Concomitant]
     Dates: start: 20090218
  20. ACETAMINOPHEN [Concomitant]
     Indication: PAIN
     Dosage: FREQUENCY REPORTED AS 4G/D.
     Dates: start: 20090218
  21. OFLOXACIN [Concomitant]
     Dates: start: 20081010
  22. SPASFON [Concomitant]
     Indication: PAIN
     Dates: start: 20090218
  23. MOPRAL [Concomitant]
     Dates: start: 20081227
  24. PHOSPHONEUROS [Concomitant]
     Indication: RENAL TUBULAR DISORDER
     Dates: start: 20090105
  25. LEDERFOLINE [Concomitant]
     Dates: start: 20080704
  26. OLICLINOMEL [Concomitant]
     Indication: PARENTERAL NUTRITION
     Dates: start: 20090102
  27. TRUVADA [Concomitant]
     Dates: start: 20080707
  28. TRUVADA [Concomitant]
     Dates: start: 20081001
  29. SUSTIVA [Concomitant]
     Dates: start: 20081001

REACTIONS (4)
  - IMMUNE RECONSTITUTION SYNDROME [None]
  - MYCOBACTERIA BLOOD TEST POSITIVE [None]
  - OESOPHAGEAL CANDIDIASIS [None]
  - RENAL FAILURE [None]
